FAERS Safety Report 25433356 (Version 1)
Quarter: 2025Q2

REPORT INFORMATION
  Report Type: Spontaneous
  Country: CN (occurrence: CN)
  Receive Date: 20250613
  Receipt Date: 20250613
  Transmission Date: 20250716
  Serious: Yes (Hospitalization)
  Sender: ELI LILLY AND COMPANY
  Company Number: CN-ELI_LILLY_AND_COMPANY-CN202506006954

PATIENT
  Age: 72 Year
  Sex: Male
  Weight: 44 kg

DRUGS (1)
  1. INSULIN LISPRO [Suspect]
     Active Substance: INSULIN LISPRO
     Indication: Hyperglycaemia
     Dosage: 19.2 U, DAILY
     Route: 058
     Dates: start: 20250523, end: 20250526

REACTIONS (3)
  - Dizziness [Recovering/Resolving]
  - Blood glucose decreased [Recovering/Resolving]
  - Hyperhidrosis [Recovering/Resolving]

NARRATIVE: CASE EVENT DATE: 20250523
